FAERS Safety Report 8509186-0 (Version None)
Quarter: 2012Q3

REPORT INFORMATION
  Report Type: 
  Country: None (occurrence: None)
  Receive Date: 20120713
  Receipt Date: 20120702
  Transmission Date: 20120928
  Serious: Yes (Other)
  Sender: FDA-Public Use
  Company Number: BR-AMGEN-BRASP2012042247

PATIENT
  Age: 65 Year
  Sex: Female
  Weight: 84 kg

DRUGS (13)
  1. FUROSEMIDE [Concomitant]
     Dosage: UNK
  2. ENBREL [Suspect]
     Dosage: 50 MG, ONCE WEEKLY
     Route: 058
     Dates: start: 20081001, end: 20120301
  3. ENALAPRIL MALEATE [Concomitant]
     Dosage: UNK
  4. PREDNISONE [Concomitant]
     Dosage: UNK
  5. FLUOXETINE HCL [Concomitant]
     Dosage: UNK
  6. METFORMIN HYDROCHLORIDE [Concomitant]
     Dosage: UNK
  7. AMITRIPTYLINE HCL [Concomitant]
     Dosage: UNK
  8. AMLODIPINE [Concomitant]
     Dosage: UNK
  9. ARAVA [Concomitant]
     Dosage: UNK
  10. METHYLDOPA [Concomitant]
     Dosage: UNK
  11. OMEPRAZOLE [Concomitant]
  12. ENBREL [Suspect]
     Indication: RHEUMATOID ARTHRITIS
     Dosage: 25.0 MG, 2X/WEEK
     Route: 058
     Dates: start: 20081001, end: 20100429
  13. PROPRANOLOL [Concomitant]
     Dosage: UNK

REACTIONS (4)
  - PAIN [None]
  - DRUG INEFFECTIVE [None]
  - DYSENTERY [None]
  - GASTRIC DISORDER [None]
